FAERS Safety Report 24272203 (Version 2)
Quarter: 2024Q3

REPORT INFORMATION
  Report Type: Spontaneous
  Country: US (occurrence: US)
  Receive Date: 20240902
  Receipt Date: 20240905
  Transmission Date: 20241017
  Serious: No
  Sender: AMGEN
  Company Number: US-AMGEN-USASP2024173741

PATIENT
  Sex: Male

DRUGS (2)
  1. MVASI [Suspect]
     Active Substance: BEVACIZUMAB-AWWB
     Indication: Lung neoplasm malignant
     Dosage: DOSE ORDERED: 1400 MILLIGRAM, DOSE REQUESTED: 400MG X3 VIALS, 100MG X2VIALS
     Route: 065
  2. MVASI [Suspect]
     Active Substance: BEVACIZUMAB-AWWB
     Dosage: DOSE ORDERED: 1400 MILLIGRAM, DOSE REQUESTED: 400MG X3 VIALS, 100MG X2VIALS
     Route: 065

REACTIONS (1)
  - Unevaluable event [Unknown]
